FAERS Safety Report 7215806-3 (Version None)
Quarter: 2011Q1

REPORT INFORMATION
  Report Type: 
  Country: None (occurrence: None)
  Receive Date: 20110107
  Receipt Date: 20101231
  Transmission Date: 20110831
  Serious: Yes (Death)
  Sender: FDA-Public Use
  Company Number: US-PFIZER INC-2011000526

PATIENT
  Age: 14 Year
  Sex: Male

DRUGS (5)
  1. HYDROCHLOROTHIAZIDE/OLMESARTAN [Suspect]
     Route: 048
  2. ATROPINE SULFATE, DIPHENOXYLATE HCL [Suspect]
     Route: 048
  3. FLUOXETINE [Suspect]
     Route: 048
  4. PREDNISOLONE [Suspect]
     Route: 048
  5. ACETAMINOPHEN [Suspect]
     Route: 048

REACTIONS (2)
  - INTENTIONAL DRUG MISUSE [None]
  - COMPLETED SUICIDE [None]
